FAERS Safety Report 24443063 (Version 2)
Quarter: 2024Q4

REPORT INFORMATION
  Report Type: Report from Study
  Country: US (occurrence: US)
  Receive Date: 20241016
  Receipt Date: 20241017
  Transmission Date: 20250114
  Serious: No
  Sender: ROCHE
  Company Number: US-ROCHE-3577237

PATIENT
  Age: 62 Year
  Sex: Male

DRUGS (1)
  1. HEMLIBRA [Suspect]
     Active Substance: EMICIZUMAB-KXWH
     Indication: Haemophilia
     Dosage: INJECT 255MG (1.7ML) SUBCUTANEOUSLY EVERY 2 WEEK(S)
     Route: 058

REACTIONS (2)
  - Medication error [Unknown]
  - No adverse event [Unknown]
